FAERS Safety Report 24588934 (Version 1)
Quarter: 2024Q4

REPORT INFORMATION
  Report Type: Spontaneous
  Country: US (occurrence: US)
  Receive Date: 20241107
  Receipt Date: 20241107
  Transmission Date: 20250115
  Serious: Yes (Hospitalization, Other)
  Sender: FRESENIUS KABI
  Company Number: US-FreseniusKabi-FK202416497

PATIENT
  Age: 35 Year
  Sex: Female

DRUGS (8)
  1. KETAMINE [Suspect]
     Active Substance: KETAMINE
     Indication: Mastectomy
  2. KETAMINE [Suspect]
     Active Substance: KETAMINE
     Indication: Anaesthesia procedure
  3. CEFAZOLIN [Concomitant]
     Active Substance: CEFAZOLIN
     Indication: Mastectomy
  4. SEVOFLURANE [Concomitant]
     Active Substance: SEVOFLURANE
     Indication: Mastectomy
  5. PROPOFOL [Concomitant]
     Active Substance: PROPOFOL
     Indication: Mastectomy
  6. ROCURONIUM [Concomitant]
     Active Substance: ROCURONIUM BROMIDE
     Indication: Mastectomy
  7. LIDOCAINE [Concomitant]
     Active Substance: LIDOCAINE
     Indication: Mastectomy
     Route: 042
  8. FENTANYL [Concomitant]
     Active Substance: FENTANYL
     Indication: Mastectomy

REACTIONS (1)
  - Anaphylactic reaction [Recovered/Resolved]
